FAERS Safety Report 22316650 (Version 1)
Quarter: 2023Q2

REPORT INFORMATION
  Report Type: Spontaneous
  Country: DE (occurrence: DE)
  Receive Date: 20230514
  Receipt Date: 20230514
  Transmission Date: 20230721
  Serious: Yes (Other)
  Sender: FDA-Public Use
  Company Number: DE-CADRBFARM-2023318505

PATIENT
  Age: 61 Year
  Sex: Male
  Weight: 72 kg

DRUGS (2)
  1. PANTOPRAZOLE SODIUM [Suspect]
     Active Substance: PANTOPRAZOLE SODIUM
     Indication: Dyspepsia
     Dosage: 40 MILLIGRAM, AS NECESSARY (1 X 40 MG AS NEEDED, VERY RARE INTAKE (ABOUT 5 TO 10 TIMES A YEAR))
     Route: 048
  2. CANDESARTAN [Concomitant]
     Active Substance: CANDESARTAN
     Indication: Hypertension
     Dosage: 8 MILLIGRAM, ONCE A DAY (2X4 MG)
     Route: 065

REACTIONS (9)
  - Blood pressure increased [Recovered/Resolved]
  - Palmar erythema [Recovered/Resolved]
  - Peripheral swelling [Recovered/Resolved]
  - Confusional state [Recovered/Resolved]
  - Hypersensitivity [Recovered/Resolved]
  - Pruritus [Recovered/Resolved]
  - Restlessness [Recovered/Resolved]
  - Plantar erythema [Recovered/Resolved]
  - Burning sensation [Recovered/Resolved]

NARRATIVE: CASE EVENT DATE: 20230328
